FAERS Safety Report 4262055-7 (Version None)
Quarter: 2004Q1

REPORT INFORMATION
  Report Type: 
  Country: None (occurrence: None)
  Receive Date: 20040102
  Receipt Date: 20031230
  Transmission Date: 20041129
  Serious: Yes (Hospitalization)
  Sender: FDA-Public Use
  Company Number: US-GLAXOSMITHKLINE-A0490866A

PATIENT
  Age: 2 Year
  Sex: Male

DRUGS (1)
  1. WELLBUTRIN [Suspect]
     Indication: ILL-DEFINED DISORDER
     Route: 048
     Dates: start: 20031229, end: 20031229

REACTIONS (2)
  - ACCIDENTAL EXPOSURE [None]
  - ACCIDENTAL OVERDOSE [None]
